FAERS Safety Report 8196635-3 (Version None)
Quarter: 2012Q1

REPORT INFORMATION
  Report Type: 
  Country: None (occurrence: None)
  Receive Date: 20120309
  Receipt Date: 20120228
  Transmission Date: 20120608
  Serious: Yes (Death, Other)
  Sender: FDA-Public Use
  Company Number: GB-CELGENEUS-167-21880-11121551

PATIENT
  Age: 79 Year
  Sex: Female
  Weight: 77 kg

DRUGS (4)
  1. GLICLAZIDE [Concomitant]
     Route: 065
  2. LOSARTAN POTASSIUM [Concomitant]
     Route: 065
  3. REVLIMID [Suspect]
     Dosage: 10 MILLIGRAM
     Route: 048
     Dates: start: 20110818, end: 20110915
  4. ATORVASTATIN [Concomitant]
     Route: 065

REACTIONS (4)
  - DIARRHOEA [None]
  - ACUTE RESPIRATORY DISTRESS SYNDROME [None]
  - RESPIRATORY FAILURE [None]
  - RASH [None]
